FAERS Safety Report 21449596 (Version 3)
Quarter: 2022Q4

REPORT INFORMATION
  Report Type: Spontaneous
  Country: FR (occurrence: FR)
  Receive Date: 20221013
  Receipt Date: 20221128
  Transmission Date: 20230113
  Serious: Yes (Other)
  Sender: FDA-Public Use
  Company Number: FR-NOVARTISPH-NVSC2022FR220356

PATIENT
  Age: 72 Year
  Sex: Male
  Weight: 64 kg

DRUGS (10)
  1. GABAPENTIN [Suspect]
     Active Substance: GABAPENTIN
     Indication: Dizziness
     Dosage: UNK, 0.13D (100)
     Route: 048
  2. GABAPENTIN [Suspect]
     Active Substance: GABAPENTIN
     Dosage: UNK, 0.17D (100)
     Route: 048
  3. GABAPENTIN [Suspect]
     Active Substance: GABAPENTIN
     Dosage: UNK, 0.5D (CAPSULE) (GABAPENTIN 100 (2 CAPSULES/DAY FOR 7 DAYS THEN (2 CAPSULES/DAY THEN 3 TABLETS/D
     Route: 048
  4. SELEXIPAG [Suspect]
     Active Substance: SELEXIPAG
     Indication: Pulmonary arterial hypertension
     Dosage: 200 UG 0.5 DAY
     Route: 048
     Dates: start: 20220820, end: 20220823
  5. SELEXIPAG [Suspect]
     Active Substance: SELEXIPAG
     Dosage: 200 UG 0.5 DAY
     Route: 048
     Dates: start: 20220825
  6. SELEXIPAG [Suspect]
     Active Substance: SELEXIPAG
     Dosage: 400 UG 0.5 DAY
     Route: 048
     Dates: start: 20220901
  7. SELEXIPAG [Suspect]
     Active Substance: SELEXIPAG
     Dosage: 600 UG 0.5 DAY
     Route: 048
     Dates: start: 20220908
  8. SELEXIPAG [Suspect]
     Active Substance: SELEXIPAG
     Dosage: 400 UG 0.5 DAY
     Route: 048
     Dates: start: 20220912
  9. TRACLEER [Suspect]
     Active Substance: BOSENTAN
     Indication: Pulmonary arterial hypertension
     Dosage: UNK
     Route: 048
  10. TADALAFIL [Concomitant]
     Active Substance: TADALAFIL
     Indication: Pulmonary arterial hypertension
     Dosage: UNK
     Route: 065

REACTIONS (11)
  - Retinal detachment [Not Recovered/Not Resolved]
  - Myalgia [Recovered/Resolved]
  - Pain in jaw [Recovered/Resolved]
  - Vision blurred [Not Recovered/Not Resolved]
  - Hypoaesthesia [Recovered/Resolved]
  - Oxygen saturation decreased [Not Recovered/Not Resolved]
  - Dyspnoea exertional [Not Recovered/Not Resolved]
  - Nasopharyngitis [Not Recovered/Not Resolved]
  - Vertigo [Unknown]
  - Oropharyngeal pain [Recovered/Resolved]
  - Product dose omission issue [Unknown]

NARRATIVE: CASE EVENT DATE: 20220908
